FAERS Safety Report 9309895 (Version 1)
Quarter: 2013Q2

REPORT INFORMATION
  Report Type: Spontaneous
  Country: US (occurrence: US)
  Receive Date: 20130526
  Receipt Date: 20130526
  Transmission Date: 20140414
  Serious: No
  Sender: FDA-Public Use
  Company Number: US-ASTRAZENECA-2013SE31675

PATIENT
  Sex: Female

DRUGS (10)
  1. SYMBICORT [Suspect]
     Indication: ASTHMA
     Dosage: 160 MCG 2 PUFFS BID
     Route: 055
  2. SYMBICORT [Suspect]
     Indication: CHRONIC OBSTRUCTIVE PULMONARY DISEASE
     Dosage: 160 MCG 2 PUFFS BID
     Route: 055
  3. MYSOLINE [Concomitant]
     Indication: ILL-DEFINED DISORDER
  4. TRICOR [Concomitant]
     Indication: BLOOD CHOLESTEROL ABNORMAL
  5. DEXLANSOPRAZOLE [Concomitant]
     Indication: GASTROOESOPHAGEAL REFLUX DISEASE
  6. PROAIR [Concomitant]
     Indication: CHRONIC OBSTRUCTIVE PULMONARY DISEASE
     Dosage: PRN
     Route: 055
  7. ALBUTEROL [Concomitant]
     Indication: CHRONIC OBSTRUCTIVE PULMONARY DISEASE
     Dosage: QID
     Route: 055
  8. IPRATROPRIUM [Concomitant]
     Indication: CHRONIC OBSTRUCTIVE PULMONARY DISEASE
     Dosage: QID
     Route: 055
  9. OXYGEN [Concomitant]
     Dates: start: 200405
  10. OXYGEN [Concomitant]
     Dosage: 3 LITERS WITH DISTILLLED WATER AT NIGHT

REACTIONS (3)
  - Dyspnoea [Unknown]
  - Adverse event [Unknown]
  - Dysphonia [Unknown]
